FAERS Safety Report 4587947-0 (Version None)
Quarter: 2005Q1

REPORT INFORMATION
  Report Type: 
  Country: None (occurrence: None)
  Receive Date: 20050215
  Receipt Date: 20050203
  Transmission Date: 20050727
  Serious: Yes (Other)
  Sender: FDA-Public Use
  Company Number: 26142

PATIENT
  Age: 62 Year
  Sex: Male

DRUGS (1)
  1. ALDARA [Suspect]
     Indication: ACTINIC KERATOSIS
     Dosage: 5 APPLICATIONS WEEKLY (1 DOSAGE  FORMS, 5 IN 1 WEEK(S)), TOPICAL
     Route: 061
     Dates: start: 20041212, end: 20041220

REACTIONS (4)
  - APPLICATION SITE ERYTHEMA [None]
  - DERMATITIS EXFOLIATIVE [None]
  - DRUG ERUPTION [None]
  - ECZEMA [None]
